FAERS Safety Report 8458428-9 (Version None)
Quarter: 2012Q2

REPORT INFORMATION
  Report Type: 
  Country: None (occurrence: None)
  Receive Date: 20120622
  Receipt Date: 20120614
  Transmission Date: 20120825
  Serious: Yes (Other)
  Sender: FDA-Public Use
  Company Number: US-BRISTOL-MYERS SQUIBB COMPANY-16687592

PATIENT
  Age: 70 Year
  Sex: Male

DRUGS (2)
  1. ORENCIA [Suspect]
     Indication: RHEUMATOID ARTHRITIS
     Dosage: INTRP ON FEB12 + RESTR ON 1JUN12,ORENCIA FOR 3-4 YEARS
     Route: 042
  2. PREDNISONE TAB [Concomitant]

REACTIONS (1)
  - JOINT SURGERY [None]
